FAERS Safety Report 19249275 (Version 13)
Quarter: 2022Q1

REPORT INFORMATION
  Report Type: Spontaneous
  Country: GB (occurrence: GB)
  Receive Date: 20210512
  Receipt Date: 20220112
  Transmission Date: 20220423
  Serious: Yes (Other)
  Sender: FDA-Public Use
  Company Number: NVSC2020GB269333

PATIENT
  Age: 51 Year
  Sex: Male
  Weight: 53 kg

DRUGS (93)
  1. CISPLATIN [Suspect]
     Active Substance: CISPLATIN
     Indication: Germ cell neoplasm
     Dosage: 79 MG, IN 1 LITER (NOT SPECIFIED) (79 MG)
     Route: 065
     Dates: start: 20200825
  2. APREPITANT [Suspect]
     Active Substance: APREPITANT
     Indication: Mineral supplementation
     Dosage: 80 MG
     Route: 065
     Dates: start: 20100825
  3. APREPITANT [Suspect]
     Active Substance: APREPITANT
     Indication: Supportive care
     Dosage: 125 MG, (D1 (125 MG)/125 MG, 1X; IN TOTAL/D1)
     Route: 065
     Dates: start: 20200825
  4. APREPITANT [Suspect]
     Active Substance: APREPITANT
     Dosage: 80 MG, (D2) SINGLE (IN TOTAL)
     Route: 065
     Dates: start: 20200825
  5. APREPITANT [Suspect]
     Active Substance: APREPITANT
     Dosage: 125 MG
     Route: 065
     Dates: start: 20200825
  6. APREPITANT [Suspect]
     Active Substance: APREPITANT
     Dosage: D1 D1 (125 MG) (125 MG)
     Route: 065
     Dates: start: 20200826
  7. APREPITANT [Suspect]
     Active Substance: APREPITANT
     Dosage: 1 DOSAGE FORMS,1 D
     Route: 065
  8. ONDANSETRON [Suspect]
     Active Substance: ONDANSETRON
     Indication: Supportive care
     Dosage: 16 MG, QD (FOR 3 DAYS (ORODISPERSIBLE FILM)
     Route: 048
     Dates: start: 20200825
  9. CALCIUM [Suspect]
     Active Substance: CALCIUM
     Indication: Mineral supplementation
     Dosage: 1 DF
     Route: 048
  10. CALCIUM [Suspect]
     Active Substance: CALCIUM
     Dosage: 2 DF, QD
     Route: 048
  11. CALCIUM [Suspect]
     Active Substance: CALCIUM
     Dosage: 8 DF, QD
     Route: 048
  12. CALCIUM [Suspect]
     Active Substance: CALCIUM
     Dosage: 1 DF, QD
     Route: 048
  13. CALCIUM [Suspect]
     Active Substance: CALCIUM
     Dosage: UNK, QD
     Route: 065
  14. CALCIUM [Suspect]
     Active Substance: CALCIUM
     Dosage: UNK UNK, QD
     Route: 065
  15. CALCIUM [Suspect]
     Active Substance: CALCIUM
     Dosage: 1 DF, QD
     Route: 048
  16. CALCIUM [Suspect]
     Active Substance: CALCIUM
     Dosage: UNK, QD, (UNK UNK, QD) (1 DOSAGE FORMS,1 IN 1 D)
     Route: 048
  17. DEXAMETHASONE [Suspect]
     Active Substance: DEXAMETHASONE
     Indication: Supportive care
     Dosage: 8 MG, QD(8 MG, 1X/DAY ) (8 MG,1 D)
     Route: 048
     Dates: start: 20200825
  18. DEXAMETHASONE [Suspect]
     Active Substance: DEXAMETHASONE
     Dosage: 30 MG, QD (30 MG,1 D)
     Route: 048
     Dates: start: 20200825
  19. DEXAMETHASONE [Suspect]
     Active Substance: DEXAMETHASONE
     Dosage: 8 MG, QD
     Route: 048
     Dates: start: 20200825
  20. ETOPOSIDE [Suspect]
     Active Substance: ETOPOSIDE
     Indication: Germ cell neoplasm
     Dosage: 360 MG, QD
     Route: 065
     Dates: start: 202007
  21. ETOPOSIDE [Suspect]
     Active Substance: ETOPOSIDE
     Dosage: 360 MG, QD, IN 1 LITER 2 BAGS (360 MG)
     Route: 065
     Dates: start: 20200825, end: 20200825
  22. PHENYLBUTAZONE [Suspect]
     Active Substance: PHENYLBUTAZONE
     Indication: Hypovitaminosis
     Dosage: 300 MG, QD
     Route: 065
  23. PHENYLBUTAZONE [Suspect]
     Active Substance: PHENYLBUTAZONE
     Dosage: 300 MG, QD
     Route: 065
  24. NICOTINE [Suspect]
     Active Substance: NICOTINE
     Indication: Drug therapy
     Dosage: 21 MG, QD, PATCH, EVERY 24 HOURS (21 MG,1 D)
     Route: 065
  25. NICOTINE [Suspect]
     Active Substance: NICOTINE
     Dosage: 21 MG, QD (PATCH, EVERY 24 HOURS)
     Route: 065
  26. THIAMINE [Suspect]
     Active Substance: THIAMINE
     Indication: Hypovitaminosis
     Dosage: 300 MG, QD
     Route: 065
  27. THIAMINE [Suspect]
     Active Substance: THIAMINE
     Dosage: UNK
     Route: 065
  28. THIAMINE HYDROCHLORIDE [Suspect]
     Active Substance: THIAMINE HYDROCHLORIDE
     Indication: Hypovitaminosis
     Dosage: 300 MG, QD
     Route: 065
  29. THIAMINE HYDROCHLORIDE [Suspect]
     Active Substance: THIAMINE HYDROCHLORIDE
     Dosage: 1 DF
     Route: 065
  30. THIAMINE HYDROCHLORIDE [Suspect]
     Active Substance: THIAMINE HYDROCHLORIDE
     Dosage: UNK UNK, QD
     Route: 065
  31. THIAMINE HYDROCHLORIDE [Suspect]
     Active Substance: THIAMINE HYDROCHLORIDE
     Dosage: 300 MG, QD
     Route: 065
  32. THIAMINE MONONITRATE [Suspect]
     Active Substance: THIAMINE MONONITRATE
     Indication: Hypovitaminosis
     Dosage: 300 MG, QD
     Route: 065
  33. THIAMINE MONONITRATE [Suspect]
     Active Substance: THIAMINE MONONITRATE
     Indication: Hypovitaminosis
     Dosage: 300 MG, QD
     Route: 065
  34. CHOLECALCIFEROL [Suspect]
     Active Substance: CHOLECALCIFEROL
     Indication: Mineral supplementation
     Dosage: 1 DF, QD, (QD(UNK, QD, (UNK UNK, QD) )
     Route: 065
  35. CHOLECALCIFEROL [Suspect]
     Active Substance: CHOLECALCIFEROL
     Dosage: 8 DF, QD
     Route: 065
  36. CHOLECALCIFEROL [Suspect]
     Active Substance: CHOLECALCIFEROL
     Dosage: 1 DF, QD, (QD(UNK, QD, (UNK UNK, QD) )
     Route: 065
  37. CHOLECALCIFEROL [Suspect]
     Active Substance: CHOLECALCIFEROL
     Dosage: TABLET(1D) / UNK, QD (TABLET(1D))
     Route: 065
  38. CHOLECALCIFEROL [Suspect]
     Active Substance: CHOLECALCIFEROL
     Dosage: 1 DF, QD
     Route: 065
  39. CHOLECALCIFEROL [Suspect]
     Active Substance: CHOLECALCIFEROL
     Dosage: UNK UNK, QD
     Route: 065
  40. CHOLECALCIFEROL [Suspect]
     Active Substance: CHOLECALCIFEROL
     Dosage: UNK, QD
     Route: 065
  41. CHOLECALCIFEROL [Suspect]
     Active Substance: CHOLECALCIFEROL
     Dosage: DOSE: 1 (UNSPECIFIED UNIT)
     Route: 065
  42. NAUZELIN [Suspect]
     Active Substance: DOMPERIDONE
     Indication: Supportive care
     Dosage: 30 MILLIGRAM, QD (30 MG, QD (PRN (30 MG,1 D)) (30 MG,1 D)
     Route: 048
     Dates: start: 20200825
  43. NAUZELIN [Suspect]
     Active Substance: DOMPERIDONE
     Dosage: 8 MG, QD (8 MILLIGRAM, QD)
     Route: 048
     Dates: start: 20200825
  44. NAUZELIN [Suspect]
     Active Substance: DOMPERIDONE
     Dosage: UNK
     Route: 065
  45. NAUZELIN [Suspect]
     Active Substance: DOMPERIDONE
     Dosage: 30 MG, QD, 30 MILLIGRAM, QD (30 MG, QD (PRN (30 MG,1 D))
     Route: 065
     Dates: start: 20200825
  46. NAUZELIN [Suspect]
     Active Substance: DOMPERIDONE
     Dosage: 30 MG, QD
     Route: 065
     Dates: start: 20200825
  47. NAUZELIN [Suspect]
     Active Substance: DOMPERIDONE
     Dosage: 16 MG (FOR 3 DAYS (16 MG,1 D))
     Route: 065
     Dates: start: 20200825
  48. NAUZELIN [Suspect]
     Active Substance: DOMPERIDONE
     Dosage: UNK
     Route: 065
     Dates: start: 20200825
  49. NAUZELIN [Suspect]
     Active Substance: DOMPERIDONE
     Dosage: UNK TABLET
     Route: 065
  50. NAUZELIN [Suspect]
     Active Substance: DOMPERIDONE
     Dosage: 30 MG, QD
     Route: 048
     Dates: start: 20200825
  51. NAUZELIN [Suspect]
     Active Substance: DOMPERIDONE
     Dosage: 30 MG, QD (30 MG, QD (PRN (30 MG,1D) )
     Route: 048
     Dates: start: 20200825
  52. NAUZELIN [Suspect]
     Active Substance: DOMPERIDONE
     Dosage: 8 MG, QD
     Route: 048
     Dates: start: 20200825
  53. CALCIUM CARBONATE\CHOLECALCIFEROL [Suspect]
     Active Substance: CALCIUM CARBONATE\CHOLECALCIFEROL
     Indication: Mineral supplementation
     Dosage: 1 DF, QD
     Route: 065
  54. CALCIUM CARBONATE\CHOLECALCIFEROL [Suspect]
     Active Substance: CALCIUM CARBONATE\CHOLECALCIFEROL
     Dosage: 2 DF, QD (TABLET 2 UNK)
     Route: 065
  55. CALCIUM CARBONATE\CHOLECALCIFEROL [Suspect]
     Active Substance: CALCIUM CARBONATE\CHOLECALCIFEROL
     Dosage: 1 DF, QD (TABLET 2 UNK)
     Route: 065
  56. CALCIUM CARBONATE\CHOLECALCIFEROL [Suspect]
     Active Substance: CALCIUM CARBONATE\CHOLECALCIFEROL
     Dosage: 1 DF, QD TABLETS
     Route: 065
  57. CALCIUM CARBONATE\CHOLECALCIFEROL [Suspect]
     Active Substance: CALCIUM CARBONATE\CHOLECALCIFEROL
     Dosage: UNK, QD
     Route: 065
  58. CALCIUM CARBONATE\CHOLECALCIFEROL [Suspect]
     Active Substance: CALCIUM CARBONATE\CHOLECALCIFEROL
     Dosage: TABLET (1 DOSAGE FORMS,1 D)
     Route: 065
  59. CALCIUM CARBONATE\CHOLECALCIFEROL [Suspect]
     Active Substance: CALCIUM CARBONATE\CHOLECALCIFEROL
     Dosage: UNK, QD, (UNK UNK, QD)
     Route: 065
  60. SODIUM CHLORIDE [Suspect]
     Active Substance: SODIUM CHLORIDE
     Indication: Medication dilution
     Dosage: SODIUM CHLORIDE INTRAVENOUS INFUSION BP 0.9% W/V
     Route: 065
     Dates: start: 20200825, end: 20200825
  61. SODIUM CHLORIDE [Suspect]
     Active Substance: SODIUM CHLORIDE
     Dosage: 0.9 %
     Route: 065
     Dates: start: 20200825, end: 20200825
  62. SODIUM CHLORIDE [Suspect]
     Active Substance: SODIUM CHLORIDE
     Dosage: UNK
     Route: 065
     Dates: start: 20200825, end: 20200825
  63. SODIUM CHLORIDE [Suspect]
     Active Substance: SODIUM CHLORIDE
     Dosage: UNK
     Route: 065
     Dates: start: 20200825, end: 20200825
  64. SODIUM CHLORIDE [Suspect]
     Active Substance: SODIUM CHLORIDE
     Dosage: 0.9 %
     Route: 042
     Dates: start: 20200825, end: 20200825
  65. SODIUM CHLORIDE [Suspect]
     Active Substance: SODIUM CHLORIDE
     Dosage: 0.9 %
     Route: 065
     Dates: start: 20200825, end: 20200825
  66. SODIUM CHLORIDE [Suspect]
     Active Substance: SODIUM CHLORIDE
     Dosage: 0.9 %
     Route: 065
     Dates: start: 20200825, end: 20200825
  67. SODIUM CHLORIDE [Suspect]
     Active Substance: SODIUM CHLORIDE
     Dosage: 0.9 %
     Route: 065
     Dates: start: 20200825, end: 20200825
  68. SODIUM CHLORIDE [Suspect]
     Active Substance: SODIUM CHLORIDE
     Dosage: SODIUM CHLORIDE INTRAVENOUS INFUSION BP 0.9% W/V 0.9
     Route: 065
     Dates: start: 20200825, end: 20200825
  69. SODIUM CHLORIDE [Suspect]
     Active Substance: SODIUM CHLORIDE
     Dosage: UNK
     Route: 042
     Dates: start: 20200825, end: 20200825
  70. CALCIUM\VITAMIN D [Suspect]
     Active Substance: CALCIUM\VITAMIN D
     Indication: Mineral supplementation
     Dosage: 8 DF, QD
     Route: 065
  71. CALCIUM\VITAMIN D [Suspect]
     Active Substance: CALCIUM\VITAMIN D
     Dosage: 1 DF, QD (UNK UNK QD)
     Route: 065
  72. CALCIUM\VITAMIN D [Suspect]
     Active Substance: CALCIUM\VITAMIN D
     Dosage: 2 DF, QD
     Route: 065
  73. ENSURE [Suspect]
     Active Substance: AMINO ACIDS\DEXTROSE\ELECTROLYTES NOS\SOYBEAN OIL\VITAMINS
     Indication: Nutritional supplementation
     Dosage: 1 DF, QD
     Route: 065
  74. ENSURE [Suspect]
     Active Substance: AMINO ACIDS\DEXTROSE\ELECTROLYTES NOS\SOYBEAN OIL\VITAMINS
     Dosage: 3 DF, (3 DF TABLETS 3UNK)
     Route: 065
  75. ENSURE [Suspect]
     Active Substance: AMINO ACIDS\DEXTROSE\ELECTROLYTES NOS\SOYBEAN OIL\VITAMINS
     Dosage: 1 DF
     Route: 065
  76. PROPYPHENAZONE [Suspect]
     Active Substance: PROPYPHENAZONE
     Indication: Hypovitaminosis
     Dosage: 300 MG, QD
     Route: 065
  77. PROPYPHENAZONE [Suspect]
     Active Substance: PROPYPHENAZONE
     Dosage: 300 MG,1 D
     Route: 065
  78. TRIBASIC CALCIUM PHOSPHATE [Suspect]
     Active Substance: TRIBASIC CALCIUM PHOSPHATE
     Indication: Mineral supplementation
     Dosage: UNK
     Route: 065
  79. TRIBASIC CALCIUM PHOSPHATE [Suspect]
     Active Substance: TRIBASIC CALCIUM PHOSPHATE
     Dosage: UNK
     Route: 065
  80. TRIBASIC CALCIUM PHOSPHATE [Suspect]
     Active Substance: TRIBASIC CALCIUM PHOSPHATE
     Dosage: UNK
     Route: 065
  81. TRIBASIC CALCIUM PHOSPHATE [Suspect]
     Active Substance: TRIBASIC CALCIUM PHOSPHATE
     Dosage: UNK
     Route: 065
  82. DOMPERIDONE MALEATE [Suspect]
     Active Substance: DOMPERIDONE MALEATE
     Indication: Product used for unknown indication
     Dosage: 8 MG, QD (8 MG,1 D)
     Route: 065
     Dates: start: 20200825
  83. DOMPERIDONE MALEATE [Suspect]
     Active Substance: DOMPERIDONE MALEATE
     Dosage: 30 MILLIGRAM, QD (30 MG, QD (PRN (30 MG,1 D)) (30 MG,1 D)
     Route: 048
     Dates: start: 20200825
  84. DOMPERIDONE MALEATE [Suspect]
     Active Substance: DOMPERIDONE MALEATE
     Dosage: UNK
     Route: 065
     Dates: start: 20200825
  85. UNSPECIFIED INGREDIENT [Suspect]
     Active Substance: UNSPECIFIED INGREDIENT
     Indication: Nutritional supplementation
     Dosage: UNK
     Route: 065
  86. UNSPECIFIED INGREDIENT [Suspect]
     Active Substance: UNSPECIFIED INGREDIENT
     Dosage: UNK
     Route: 065
  87. UNSPECIFIED INGREDIENT [Suspect]
     Active Substance: UNSPECIFIED INGREDIENT
     Dosage: UNK, QD
     Route: 065
  88. UNSPECIFIED INGREDIENT [Suspect]
     Active Substance: UNSPECIFIED INGREDIENT
     Dosage: UNK, QD
     Route: 065
  89. UNSPECIFIED INGREDIENT [Suspect]
     Active Substance: UNSPECIFIED INGREDIENT
     Dosage: UNK, QD
     Route: 065
  90. UNSPECIFIED INGREDIENT [Suspect]
     Active Substance: UNSPECIFIED INGREDIENT
     Dosage: UNK, QD
     Route: 065
  91. UNSPECIFIED INGREDIENT [Suspect]
     Active Substance: UNSPECIFIED INGREDIENT
     Dosage: (1 D)
     Route: 065
  92. ARCOXIA [Suspect]
     Active Substance: ETORICOXIB
     Indication: Product used for unknown indication
     Dosage: UNK
     Route: 065
  93. COCODAMOL [Suspect]
     Active Substance: ACETAMINOPHEN\CODEINE PHOSPHATE
     Indication: Product used for unknown indication
     Dosage: UNK
     Route: 065

REACTIONS (9)
  - Hypersensitivity [Recovered/Resolved]
  - Abdominal distension [Unknown]
  - Barrett^s oesophagus [Unknown]
  - Vitamin B12 deficiency [Unknown]
  - Regurgitation [Unknown]
  - Dyspepsia [Unknown]
  - Neck pain [Unknown]
  - Oropharyngeal discomfort [Unknown]
  - Eructation [Unknown]

NARRATIVE: CASE EVENT DATE: 20200825
